FAERS Safety Report 6669241-7 (Version None)
Quarter: 2010Q2

REPORT INFORMATION
  Report Type: 
  Country: None (occurrence: None)
  Receive Date: 20100406
  Receipt Date: 20100315
  Transmission Date: 20101027
  Serious: Yes (Other)
  Sender: FDA-Public Use
  Company Number: US-SANOFI-AVENTIS-2010SA009887

PATIENT
  Age: 89 Year
  Sex: Female
  Weight: 54.5 kg

DRUGS (7)
  1. MULTAQ [Suspect]
     Indication: ATRIAL FIBRILLATION
     Route: 048
     Dates: start: 20090901, end: 20090901
  2. MULTAQ [Suspect]
     Dosage: THREE HALF TABLETS
     Route: 048
     Dates: start: 20090901, end: 20100101
  3. VITAMIN B-12 [Concomitant]
     Indication: NERVOUS SYSTEM DISORDER
  4. LASIX [Concomitant]
  5. CALCIUM [Concomitant]
  6. VITAMINS [Concomitant]
  7. IRON [Concomitant]
     Route: 065

REACTIONS (7)
  - ATRIAL FIBRILLATION [None]
  - DIZZINESS [None]
  - DRUG INEFFECTIVE [None]
  - NAUSEA [None]
  - OEDEMA PERIPHERAL [None]
  - PULMONARY OEDEMA [None]
  - TREMOR [None]
